FAERS Safety Report 19199327 (Version 1)
Quarter: 2021Q2

REPORT INFORMATION
  Report Type: Spontaneous
  Country: GB (occurrence: GB)
  Receive Date: 20210430
  Receipt Date: 20210430
  Transmission Date: 20210717
  Serious: Yes (Hospitalization)
  Sender: FDA-Public Use
  Company Number: GB-TEVA-2021-GB-1905335

PATIENT
  Sex: Female

DRUGS (1)
  1. TRIMETHOPRIM. [Suspect]
     Active Substance: TRIMETHOPRIM
     Route: 065

REACTIONS (7)
  - Ocular hyperaemia [Unknown]
  - Platelet count decreased [Unknown]
  - Contusion [Unknown]
  - Epistaxis [Unknown]
  - Gingival bleeding [Unknown]
  - Drug hypersensitivity [Unknown]
  - Rash [Unknown]
